FAERS Safety Report 12742497 (Version 3)
Quarter: 2016Q3

REPORT INFORMATION
  Report Type: Spontaneous
  Country: FR (occurrence: FR)
  Receive Date: 20160914
  Receipt Date: 20160929
  Transmission Date: 20161109
  Serious: Yes (Hospitalization, Other)
  Sender: FDA-Public Use
  Company Number: FR-PFIZER INC-2016423776

PATIENT
  Age: 66 Year
  Sex: Female

DRUGS (7)
  1. FORSTEO [Concomitant]
     Active Substance: TERIPARATIDE
     Dosage: UNK
     Route: 058
     Dates: start: 20160602
  2. CORTANCYL [Concomitant]
     Active Substance: PREDNISONE
     Indication: DERMATOMYOSITIS
     Dosage: 10 MG, DAILY
     Route: 048
  3. EUPANTOL [Concomitant]
     Active Substance: PANTOPRAZOLE SODIUM
     Dosage: 1 DF, ONCE A DAY
     Route: 048
  4. FRAGMINE [Suspect]
     Active Substance: DALTEPARIN SODIUM
     Dosage: 100000 IU, 2X/DAY (MORNING AND EVENING)
     Route: 058
     Dates: end: 201606
  5. COUMADINE [Suspect]
     Active Substance: WARFARIN SODIUM
     Dosage: 3 MG, ONCE DAILY (EVENING)
     Route: 048
     Dates: end: 201606
  6. ZYMAD [Concomitant]
     Active Substance: CHOLECALCIFEROL
     Dosage: UNK
     Route: 048
  7. FRAGMINE [Suspect]
     Active Substance: DALTEPARIN SODIUM
     Dosage: 5000 IU, 2X/DAY

REACTIONS (3)
  - Overdose [Unknown]
  - Haematoma [Recovered/Resolved]
  - Anaemia [Unknown]

NARRATIVE: CASE EVENT DATE: 20160608
